FAERS Safety Report 18263568 (Version 1)
Quarter: 2020Q3

REPORT INFORMATION
  Report Type: Report from Study
  Country: US (occurrence: US)
  Receive Date: 20200914
  Receipt Date: 20200914
  Transmission Date: 20201103
  Serious: Yes (Hospitalization)
  Sender: FDA-Public Use
  Company Number: US-EISAI MEDICAL RESEARCH-EC-2020-074373

PATIENT
  Age: 54 Year
  Sex: Female

DRUGS (3)
  1. LENVIMA [Suspect]
     Active Substance: LENVATINIB
     Indication: SALIVARY GLAND CANCER
     Route: 048
     Dates: start: 20200423, end: 2020
  2. LENVIMA [Suspect]
     Active Substance: LENVATINIB
     Route: 048
     Dates: start: 20200831
  3. LENVIMA [Suspect]
     Active Substance: LENVATINIB
     Dosage: MONDAY THROUGH FRIDAY, HOLD ON WEEKENDS
     Route: 048
     Dates: start: 2020, end: 202008

REACTIONS (17)
  - Stomatitis [Recovered/Resolved]
  - Heart rate increased [Unknown]
  - Mouth swelling [Unknown]
  - Product use in unapproved indication [Unknown]
  - Genital rash [Recovering/Resolving]
  - Pruritus [Recovered/Resolved]
  - Dizziness postural [Recovered/Resolved]
  - Vomiting [Unknown]
  - Skin burning sensation [Recovered/Resolved]
  - Hypertension [Recovering/Resolving]
  - Rash [Recovering/Resolving]
  - Arthralgia [Unknown]
  - Dry skin [Recovering/Resolving]
  - Abdominal pain upper [Unknown]
  - Oral pain [Unknown]
  - Constipation [Recovering/Resolving]
  - Gallbladder disorder [Unknown]

NARRATIVE: CASE EVENT DATE: 2020
